FAERS Safety Report 5128943-4 (Version None)
Quarter: 2006Q4

REPORT INFORMATION
  Report Type: 
  Country: None (occurrence: None)
  Receive Date: 20061017
  Receipt Date: 20061012
  Transmission Date: 20070319
  Serious: Yes (Hospitalization)
  Sender: FDA-Public Use
  Company Number: US-BRISTOL-MYERS SQUIBB COMPANY-13540067

PATIENT
  Sex: Male

DRUGS (4)
  1. MONOPRIL [Suspect]
  2. ATENOLOL [Suspect]
  3. MOTRIN [Suspect]
  4. HUMULIN 70/30 [Suspect]

REACTIONS (4)
  - BLOOD POTASSIUM INCREASED [None]
  - NAUSEA [None]
  - RENAL DISORDER [None]
  - RENAL IMPAIRMENT [None]
